FAERS Safety Report 18709381 (Version 1)
Quarter: 2021Q1

REPORT INFORMATION
  Report Type: Spontaneous
  Country: US (occurrence: US)
  Receive Date: 20210106
  Receipt Date: 20210106
  Transmission Date: 20210419
  Serious: Yes (Hospitalization, Other)
  Sender: FDA-Public Use
  Company Number: US-VALIDUS PHARMACEUTICALS LLC-US-2020VAL001114

PATIENT
  Age: 88 Year
  Sex: Female

DRUGS (1)
  1. FUROSEMIDE. [Suspect]
     Active Substance: FUROSEMIDE
     Indication: CARDIAC FAILURE
     Dosage: UNK
     Route: 065

REACTIONS (6)
  - Anion gap increased [Recovered/Resolved]
  - Dyspnoea [Recovering/Resolving]
  - Blood bicarbonate decreased [Recovering/Resolving]
  - Lactic acidosis [Recovering/Resolving]
  - Vitamin B1 deficiency [Recovering/Resolving]
  - Blood lactic acid increased [Recovering/Resolving]
